FAERS Safety Report 23142327 (Version 1)
Quarter: 2023Q4

REPORT INFORMATION
  Report Type: Spontaneous
  Country: US (occurrence: US)
  Receive Date: 20231103
  Receipt Date: 20231103
  Transmission Date: 20240110
  Serious: No
  Sender: FDA-Public Use
  Company Number: US-SCPHARMACEUTICALS-2023-SCPH-US000120

PATIENT
  Sex: Female

DRUGS (1)
  1. FUROSCIX [Suspect]
     Active Substance: FUROSEMIDE
     Indication: Product used for unknown indication
     Dosage: UNK, A COUPLE OF MONTHS
     Route: 058

REACTIONS (1)
  - Infusion site bruising [Unknown]

NARRATIVE: CASE EVENT DATE: 20230824
